FAERS Safety Report 11632490 (Version 1)
Quarter: 2015Q4

REPORT INFORMATION
  Report Type: Spontaneous
  Country: US (occurrence: US)
  Receive Date: 20151015
  Receipt Date: 20151015
  Transmission Date: 20160304
  Serious: Yes (Hospitalization)
  Sender: FDA-Public Use
  Company Number: US-GLENMARK PHARMACEUTICALS INC, USA.-2015GMK019875

PATIENT
  Age: 32 Year
  Sex: Female
  Weight: 111 kg

DRUGS (2)
  1. TIGECYCLINE. [Suspect]
     Active Substance: TIGECYCLINE
     Indication: PRODUCT USED FOR UNKNOWN INDICATION
     Dosage: UNK
  2. SULFAMETHOXAZOLE AND TRIMETHOPRIM [Suspect]
     Active Substance: SULFAMETHOXAZOLE\TRIMETHOPRIM
     Indication: CELLULITIS STAPHYLOCOCCAL
     Dosage: 160/800MG, BID
     Route: 048

REACTIONS (9)
  - Osteomyelitis [None]
  - Rash [None]
  - Disease progression [Unknown]
  - Nausea [Unknown]
  - Cough [Unknown]
  - Paraesthesia [Unknown]
  - Vomiting [Unknown]
  - Off label use [Unknown]
  - Pain in extremity [None]
